FAERS Safety Report 8579252-2 (Version None)
Quarter: 2012Q3

REPORT INFORMATION
  Report Type: 
  Country: None (occurrence: None)
  Receive Date: 20120808
  Receipt Date: 20120803
  Transmission Date: 20120928
  Serious: Yes (Other)
  Sender: FDA-Public Use
  Company Number: FR-ROCHE-1096259

PATIENT
  Sex: Male

DRUGS (7)
  1. FLUOROURACIL [Concomitant]
     Dates: start: 20110810
  2. IRINOTECAN HCL [Concomitant]
     Indication: COLON CANCER
     Dates: start: 20110523, end: 20110802
  3. OXALIPLATIN [Concomitant]
     Indication: COLON CANCER
     Dates: start: 20110810
  4. FLUOROURACIL [Concomitant]
     Indication: COLON CANCER
     Dates: start: 20110523, end: 20110802
  5. LEUCOVORIN CALCIUM [Concomitant]
     Dates: start: 20110810
  6. LEUCOVORIN CALCIUM [Concomitant]
     Indication: COLON CANCER
     Dates: start: 20110523, end: 20110802
  7. AVASTIN [Suspect]
     Indication: COLON CANCER
     Dates: start: 20110523, end: 20110802

REACTIONS (3)
  - ASTHENIA [None]
  - DISEASE PROGRESSION [None]
  - ANAEMIA [None]
